FAERS Safety Report 14410858 (Version 1)
Quarter: 2018Q1

REPORT INFORMATION
  Report Type: Spontaneous
  Country: US (occurrence: US)
  Receive Date: 20180117
  Receipt Date: 20180117
  Transmission Date: 20180509
  Serious: No
  Sender: FDA-Public Use
  Company Number: None

PATIENT
  Age: 64 Year
  Sex: Female

DRUGS (33)
  1. XELJANZ [Suspect]
     Active Substance: TOFACITINIB CITRATE
     Indication: RHEUMATOID ARTHRITIS
     Route: 048
     Dates: start: 20170803
  2. CYCLOBENZAPR [Concomitant]
     Active Substance: CYCLOBENZAPRINE
  3. ESTRACE [Concomitant]
     Active Substance: ESTRADIOL
  4. GAVISCON [Concomitant]
     Active Substance: ALUMINUM HYDROXIDE\MAGNESIUM CARBONATE
  5. MONTELUKAST [Concomitant]
     Active Substance: MONTELUKAST SODIUM
  6. TURMERIC [Concomitant]
     Active Substance: HERBALS\TURMERIC
  7. RALOXIFENE. [Concomitant]
     Active Substance: RALOXIFENE
  8. SUCRALFATE. [Concomitant]
     Active Substance: SUCRALFATE
  9. WAL-ZYR (CETIRIZINE HYDROCHLORIDE) [Concomitant]
     Active Substance: CETIRIZINE HYDROCHLORIDE
  10. VIT C LOZ [Concomitant]
  11. HYDROXYCHLOR [Concomitant]
     Active Substance: HYDROXYCHLOROQUINE
  12. LIALDA [Concomitant]
     Active Substance: MESALAMINE
  13. GUAIFENESIN SOL [Concomitant]
  14. PANTOPRAZOLE [Concomitant]
     Active Substance: PANTOPRAZOLE
  15. PLAVIX [Concomitant]
     Active Substance: CLOPIDOGREL BISULFATE
  16. EPIPEN 2-PAK INJECTIONS [Concomitant]
  17. EVISTA [Concomitant]
     Active Substance: RALOXIFENE HYDROCHLORIDE
  18. FISH OIL [Concomitant]
     Active Substance: FISH OIL
  19. FLUTICASONE. [Concomitant]
     Active Substance: FLUTICASONE
  20. RESVERAROL [Concomitant]
  21. TUDORZA PRES AER [Concomitant]
  22. DICLOFENAC [Concomitant]
     Active Substance: DICLOFENAC
  23. FINACEA [Concomitant]
     Active Substance: AZELAIC ACID
  24. PHAZYME CHEW [Concomitant]
  25. MULTIVITAMIN LIQ [Concomitant]
  26. TRAMADOL HCL [Concomitant]
     Active Substance: TRAMADOL HYDROCHLORIDE
  27. CAL CIT-D3 [Concomitant]
  28. NORCO [Concomitant]
     Active Substance: ACETAMINOPHEN\HYDROCODONE BITARTRATE
  29. PROVENTIL HFA [Concomitant]
     Active Substance: ALBUTEROL SULFATE
  30. PSEUDOEPHEDRINE [Concomitant]
     Active Substance: PSEUDOEPHEDRINE
  31. SELENIUM [Concomitant]
     Active Substance: SELENIUM
  32. SINGULAIR [Concomitant]
     Active Substance: MONTELUKAST SODIUM
  33. VENTOLIN HFA AER [Concomitant]

REACTIONS (2)
  - Knee operation [None]
  - Procedural pain [None]
